FAERS Safety Report 18485990 (Version 1)
Quarter: 2020Q4

REPORT INFORMATION
  Report Type: Spontaneous
  Country: US (occurrence: US)
  Receive Date: 20201110
  Receipt Date: 20201110
  Transmission Date: 20210114
  Serious: Yes (Hospitalization)
  Sender: FDA-Public Use
  Company Number: None

PATIENT
  Age: 1 Day
  Sex: Male

DRUGS (1)
  1. VITAMIN K [Suspect]
     Active Substance: PHYTONADIONE
     Dosage: ?          OTHER ROUTE:NEEDLE + SYRINGE?

REACTIONS (1)
  - Jaundice [None]

NARRATIVE: CASE EVENT DATE: 20200826
